FAERS Safety Report 20730241 (Version 1)
Quarter: 2022Q2

REPORT INFORMATION
  Report Type: Spontaneous
  Country: CA (occurrence: CA)
  Receive Date: 20220420
  Receipt Date: 20220420
  Transmission Date: 20220721
  Serious: Yes (Hospitalization, Other)
  Sender: FDA-Public Use
  Company Number: CA-PFIZER INC-202200526140

PATIENT
  Age: 31 Year
  Sex: Female

DRUGS (2)
  1. XELJANZ [Suspect]
     Active Substance: TOFACITINIB CITRATE
     Indication: Colitis ulcerative
     Dosage: 10MG TID X 9 DOSES (3 DAYS) THEN REDUCE TO BID.
     Route: 048
     Dates: start: 20220331, end: 20220402
  2. XELJANZ [Suspect]
     Active Substance: TOFACITINIB CITRATE
     Dosage: 10MG TID X 9 DOSES (3 DAYS) THEN REDUCE TO BID.
     Route: 048
     Dates: start: 20220403, end: 20220408

REACTIONS (3)
  - Ileostomy [Unknown]
  - Colectomy [Unknown]
  - Off label use [Unknown]

NARRATIVE: CASE EVENT DATE: 20220401
